FAERS Safety Report 17007466 (Version 4)
Quarter: 2020Q3

REPORT INFORMATION
  Report Type: Report from Study
  Country: None (occurrence: CO)
  Receive Date: 20191108
  Receipt Date: 20200702
  Transmission Date: 20201102
  Serious: Yes (Hospitalization, Other)
  Sender: FDA-Public Use
  Company Number: CO-ABBVIE-19K-036-2993535-00

PATIENT
  Age: 51 Year
  Sex: Female
  Weight: 75 kg

DRUGS (7)
  1. HUMIRA [Suspect]
     Active Substance: ADALIMUMAB
     Indication: RHEUMATOID ARTHRITIS
     Route: 058
     Dates: start: 20170621, end: 20190820
  2. HUMIRA [Suspect]
     Active Substance: ADALIMUMAB
     Route: 058
     Dates: start: 202006
  3. DIPYRONE [Suspect]
     Active Substance: DIPYRONE
     Indication: PAIN IN EXTREMITY
     Dosage: RECEIVED IN PAST BEFORE HUMIRA
     Route: 065
  4. DIPYRONE [Suspect]
     Active Substance: DIPYRONE
     Dosage: AS A SUSPECT
     Route: 065
  5. HUMIRA [Suspect]
     Active Substance: ADALIMUMAB
     Indication: RHEUMATOID ARTHRITIS
     Route: 058
     Dates: end: 20200412
  6. NAPROXEN. [Suspect]
     Active Substance: NAPROXEN
     Indication: PRODUCT USED FOR UNKNOWN INDICATION
     Route: 065
  7. PREDNISOLONE. [Suspect]
     Active Substance: PREDNISOLONE
     Indication: PRODUCT USED FOR UNKNOWN INDICATION
     Route: 065

REACTIONS (23)
  - Intraocular pressure decreased [Recovering/Resolving]
  - Cyanosis [Recovering/Resolving]
  - Erythema [Recovered/Resolved]
  - Dyspnoea [Recovering/Resolving]
  - Pyrexia [Recovered/Resolved]
  - Oral mucosal discolouration [Recovered/Resolved]
  - Arthralgia [Not Recovered/Not Resolved]
  - Seizure [Recovered/Resolved]
  - Eye disorder [Recovering/Resolving]
  - Abdominal abscess [Recovered/Resolved]
  - Pain in extremity [Not Recovered/Not Resolved]
  - Drug hypersensitivity [Unknown]
  - Blood glucose abnormal [Unknown]
  - Skin disorder [Unknown]
  - Blindness unilateral [Unknown]
  - Abdominal pain [Unknown]
  - Nasopharyngitis [Unknown]
  - Hypertension [Recovering/Resolving]
  - Tongue disorder [Recovered/Resolved]
  - Hypotension [Recovered/Resolved]
  - Respiratory distress [Recovered/Resolved]
  - Hypoaesthesia oral [Unknown]
  - Pain in extremity [Recovered/Resolved]

NARRATIVE: CASE EVENT DATE: 2019
